FAERS Safety Report 25996196 (Version 1)
Quarter: 2025Q4

REPORT INFORMATION
  Report Type: Spontaneous
  Country: CN (occurrence: CN)
  Receive Date: 20251104
  Receipt Date: 20251104
  Transmission Date: 20260117
  Serious: Yes (Other)
  Sender: BRISTOL-MYERS SQUIBB COMPANY
  Company Number: CN-BRISTOL-MYERS SQUIBB COMPANY-2025-148994

PATIENT

DRUGS (2)
  1. MAVACAMTEN [Suspect]
     Active Substance: MAVACAMTEN
     Indication: Product used for unknown indication
     Route: 048
  2. MAVACAMTEN [Suspect]
     Active Substance: MAVACAMTEN
     Route: 048

REACTIONS (4)
  - Aortic valve incompetence [Unknown]
  - Tricuspid valve incompetence [Unknown]
  - Aortic aneurysm [Unknown]
  - Off label use [Unknown]
